FAERS Safety Report 9141464 (Version 3)
Quarter: 2014Q1

REPORT INFORMATION
  Report Type: Spontaneous
  Country: US (occurrence: US)
  Receive Date: 20130305
  Receipt Date: 20140203
  Transmission Date: 20141002
  Serious: No
  Sender: FDA-Public Use
  Company Number: US-AMGEN-USASP2013009800

PATIENT
  Age: 42 Year
  Sex: Female
  Weight: 107.48 kg

DRUGS (2)
  1. ENBREL [Suspect]
     Indication: PSORIATIC ARTHROPATHY
     Dosage: 50 MG, QWK
     Route: 058
     Dates: start: 20080404
  2. ENBREL [Suspect]
     Indication: PSORIASIS

REACTIONS (5)
  - Arthralgia [Recovered/Resolved]
  - Oropharyngeal blistering [Recovered/Resolved]
  - Psoriasis [Recovered/Resolved]
  - Influenza [Recovered/Resolved]
  - Injection site pain [Not Recovered/Not Resolved]
